FAERS Safety Report 13081236 (Version 1)
Quarter: 2017Q1

REPORT INFORMATION
  Report Type: Spontaneous
  Country: FR (occurrence: FR)
  Receive Date: 20170103
  Receipt Date: 20170103
  Transmission Date: 20170428
  Serious: Yes (Other)
  Sender: FDA-Public Use
  Company Number: FR-JNJFOC-20160817743

PATIENT
  Age: 30 Year
  Sex: Male
  Weight: 61 kg

DRUGS (3)
  1. XEPLION [Suspect]
     Active Substance: PALIPERIDONE PALMITATE
     Indication: PERSONALITY DISORDER
     Dosage: GLUTEAL
     Route: 030
     Dates: start: 201610, end: 20161227
  2. XEPLION [Suspect]
     Active Substance: PALIPERIDONE PALMITATE
     Indication: PERSONALITY DISORDER
     Dosage: DELTOID TILL AUG-2016 THEN GLUTEAL
     Route: 030
     Dates: start: 201606
  3. XEPLION [Suspect]
     Active Substance: PALIPERIDONE PALMITATE
     Indication: PERSONALITY DISORDER
     Dosage: DELTOID
     Route: 030
     Dates: start: 201502

REACTIONS (4)
  - Hypokinesia [Not Recovered/Not Resolved]
  - Injection site pain [Not Recovered/Not Resolved]
  - Injection site induration [Not Recovered/Not Resolved]
  - Activities of daily living impaired [Not Recovered/Not Resolved]

NARRATIVE: CASE EVENT DATE: 20160819
